FAERS Safety Report 25786423 (Version 1)
Quarter: 2025Q3

REPORT INFORMATION
  Report Type: Spontaneous
  Country: US (occurrence: US)
  Receive Date: 20250910
  Receipt Date: 20250910
  Transmission Date: 20251021
  Serious: No
  Sender: SANOFI AVENTIS
  Company Number: US-SANOFI-02644779

PATIENT

DRUGS (1)
  1. DUPIXENT [Suspect]
     Active Substance: DUPILUMAB
     Indication: Dermatitis atopic

REACTIONS (6)
  - Hypersensitivity [Unknown]
  - Rash [Unknown]
  - Skin warm [Unknown]
  - Pruritus [Unknown]
  - Urticaria [Unknown]
  - Condition aggravated [Unknown]
